FAERS Safety Report 11636043 (Version 2)
Quarter: 2015Q4

REPORT INFORMATION
  Report Type: Report from Study
  Country: US (occurrence: US)
  Receive Date: 20151016
  Receipt Date: 20151027
  Transmission Date: 20160304
  Serious: No
  Sender: FDA-Public Use
  Company Number: US-AMGEN-USASP2015106313

PATIENT
  Age: 71 Year
  Sex: Male

DRUGS (2)
  1. ENBREL [Suspect]
     Active Substance: ETANERCEPT
     Dosage: 25 MG EVERY 4 DAYS
     Route: 065
  2. ENBREL [Suspect]
     Active Substance: ETANERCEPT
     Indication: RHEUMATOID ARTHRITIS
     Dosage: 25 MG EVERY 4 DAYS
     Route: 065
     Dates: start: 1999

REACTIONS (3)
  - Device leakage [Unknown]
  - Underdose [Unknown]
  - Device malfunction [Unknown]

NARRATIVE: CASE EVENT DATE: 2015
